FAERS Safety Report 9921389 (Version 4)
Quarter: 2014Q2

REPORT INFORMATION
  Report Type: Report from Study
  Country: IL (occurrence: IL)
  Receive Date: 20140225
  Receipt Date: 20140401
  Transmission Date: 20141212
  Serious: Yes (Hospitalization)
  Sender: FDA-Public Use
  Company Number: IL-ROCHE-1354494

PATIENT
  Age: 59 Year
  Sex: Female

DRUGS (7)
  1. PEG-INTERFERON ALFA 2A [Suspect]
     Indication: HEPATITIS C
     Route: 058
     Dates: start: 20131128, end: 20140206
  2. PEG-INTERFERON ALFA 2A [Suspect]
     Route: 058
     Dates: start: 20140209
  3. RIBAVIRIN [Suspect]
     Indication: HEPATITIS C
     Route: 048
     Dates: start: 20131128, end: 20140206
  4. RIBAVIRIN [Suspect]
     Route: 048
     Dates: start: 20140209
  5. TELAPREVIR [Suspect]
     Indication: HEPATITIS C
     Route: 048
     Dates: start: 20131128, end: 20140206
  6. SIMVASTATIN [Concomitant]
     Indication: HYPERCHOLESTEROLAEMIA
     Route: 048
  7. NORMALOL [Concomitant]
     Indication: HYPERTENSION
     Route: 048

REACTIONS (2)
  - Pancytopenia [Recovered/Resolved]
  - Haemoglobin decreased [Recovered/Resolved]
